FAERS Safety Report 21962875 (Version 2)
Quarter: 2023Q1

REPORT INFORMATION
  Report Type: Spontaneous
  Country: CO (occurrence: CO)
  Receive Date: 20230207
  Receipt Date: 20230208
  Transmission Date: 20230418
  Serious: Yes (Other)
  Sender: FDA-Public Use
  Company Number: CO-PFIZER INC-PV202300020594

PATIENT
  Age: 74 Year
  Sex: Male

DRUGS (1)
  1. SUNITINIB MALATE [Suspect]
     Active Substance: SUNITINIB MALATE
     Indication: Gastrointestinal stromal tumour
     Dosage: 50 MG, CYCLIC, FOLLOWED BY A 2 WEEK REST PERIOD
     Dates: start: 201808, end: 202005

REACTIONS (4)
  - Renal-limited thrombotic microangiopathy [Unknown]
  - Renal failure [Recovering/Resolving]
  - Nephrotic syndrome [Recovering/Resolving]
  - Hypertension [Recovering/Resolving]
